FAERS Safety Report 9735560 (Version 1)
Quarter: 2013Q4

REPORT INFORMATION
  Report Type: Spontaneous
  Country: US (occurrence: US)
  Receive Date: 20131206
  Receipt Date: 20131206
  Transmission Date: 20140711
  Serious: No
  Sender: FDA-Public Use
  Company Number: US-GILEAD-2009-0023971

PATIENT
  Age: 78 Year
  Sex: Female
  Weight: 67.13 kg

DRUGS (12)
  1. LETAIRIS [Suspect]
     Indication: PULMONARY ARTERIAL HYPERTENSION
     Route: 048
     Dates: start: 20090803
  2. REVATIO [Concomitant]
  3. DILTIAZEM [Concomitant]
  4. ZOCOR [Concomitant]
  5. SYNTHROID [Concomitant]
  6. VENTOLIN HFA [Concomitant]
  7. SYMBICORT [Concomitant]
  8. FOSAMAX [Concomitant]
  9. VITAMIN D [Concomitant]
  10. VITAMIN B-12 LOZ [Concomitant]
  11. CALCIUM + D [Concomitant]
  12. BABY ASPIRIN [Concomitant]

REACTIONS (2)
  - Dizziness [Not Recovered/Not Resolved]
  - Abdominal discomfort [Not Recovered/Not Resolved]
